FAERS Safety Report 23772643 (Version 1)
Quarter: 2024Q2

REPORT INFORMATION
  Report Type: Spontaneous
  Country: GB (occurrence: GB)
  Receive Date: 20240423
  Receipt Date: 20240423
  Transmission Date: 20240716
  Serious: Yes (Disabling, Other)
  Sender: FDA-Public Use
  Company Number: None

PATIENT
  Age: 41 Year
  Sex: Female
  Weight: 64 kg

DRUGS (1)
  1. MIRENA [Suspect]
     Active Substance: LEVONORGESTREL
     Indication: Uterine leiomyoma
     Dosage: 20?G/DAY
     Route: 015
     Dates: start: 20230728

REACTIONS (8)
  - Vaginal haemorrhage [Not Recovered/Not Resolved]
  - Asthenia [None]
  - Fatigue [Not Recovered/Not Resolved]
  - Iron deficiency [None]
  - Vitamin B complex deficiency [None]
  - Appetite disorder [Not Recovered/Not Resolved]
  - Weight increased [None]
  - Medication error [Unknown]

NARRATIVE: CASE EVENT DATE: 20230728
